FAERS Safety Report 6198664-8 (Version None)
Quarter: 2009Q2

REPORT INFORMATION
  Report Type: 
  Country: None (occurrence: None)
  Receive Date: 20090521
  Receipt Date: 20090520
  Transmission Date: 20091009
  Serious: Yes (Other)
  Sender: FDA-Public Use
  Company Number: US-ABBOTT-09P-163-0573720-00

PATIENT
  Age: 28 Year
  Sex: Female

DRUGS (4)
  1. NORVIR [Suspect]
     Indication: DRUG USE FOR UNKNOWN INDICATION
     Dosage: 100MG DAILY
     Route: 048
     Dates: start: 20040630
  2. LAMIVUDINE [Suspect]
     Indication: DRUG USE FOR UNKNOWN INDICATION
     Dosage: 300 MG DAILY
     Route: 048
     Dates: start: 20040630
  3. TENOFOVIR DISOPROXIL FUMARATE [Suspect]
     Indication: DRUG USE FOR UNKNOWN INDICATION
     Dosage: 300MG DAILY
     Route: 048
     Dates: start: 20040630
  4. ATAZANAVIR SULFATE [Suspect]
     Indication: DRUG USE FOR UNKNOWN INDICATION
     Dosage: 300MG DAILY
     Route: 048
     Dates: start: 20040630

REACTIONS (1)
  - ABORTION SPONTANEOUS [None]
